FAERS Safety Report 14743977 (Version 1)
Quarter: 2018Q2

REPORT INFORMATION
  Report Type: Spontaneous
  Country: GB (occurrence: GB)
  Receive Date: 20180411
  Receipt Date: 20180411
  Transmission Date: 20180711
  Serious: Yes (Other)
  Sender: FDA-Public Use
  Company Number: GB-TEVA-2018-GB-880632

PATIENT
  Age: 42 Year
  Sex: Male
  Weight: 73 kg

DRUGS (4)
  1. ITRACONAZOLE. [Concomitant]
     Active Substance: ITRACONAZOLE
     Dosage: 4 DOSAGE FORMS DAILY;
     Dates: start: 20171106
  2. TERBINAFINE. [Suspect]
     Active Substance: TERBINAFINE
     Dates: start: 20170906
  3. SALBUTAMOL [Concomitant]
     Active Substance: ALBUTEROL
     Dosage: UP TO 4 TIMES DAILY
     Route: 055
     Dates: start: 20161005
  4. SYMBICORT [Concomitant]
     Active Substance: BUDESONIDE\FORMOTEROL FUMARATE DIHYDRATE
     Dosage: 2 DOSAGE FORMS DAILY;
     Route: 055
     Dates: start: 20161005

REACTIONS (2)
  - Rash macular [Unknown]
  - Pruritus [Unknown]

NARRATIVE: CASE EVENT DATE: 20171104
